FAERS Safety Report 10728704 (Version 1)
Quarter: 2015Q1

REPORT INFORMATION
  Report Type: Report from Study
  Country: BR (occurrence: BR)
  Receive Date: 20150122
  Receipt Date: 20150122
  Transmission Date: 20150721
  Serious: Yes (Death, Hospitalization, Other)
  Sender: FDA-Public Use
  Company Number: BR-BIOGENIDEC-2015BI004192

PATIENT
  Age: 65 Year
  Sex: Male

DRUGS (1)
  1. TYSABRI [Suspect]
     Active Substance: NATALIZUMAB
     Indication: MULTIPLE SCLEROSIS
     Route: 042
     Dates: start: 201111, end: 201412

REACTIONS (9)
  - Cystitis [Fatal]
  - Cardiac murmur [Unknown]
  - Dehydration [Unknown]
  - Hypotension [Unknown]
  - Trigeminal neuralgia [Unknown]
  - Myocardial infarction [Recovered/Resolved with Sequelae]
  - Multiple sclerosis [Fatal]
  - Cerebral atrophy [Unknown]
  - Sepsis [Fatal]

NARRATIVE: CASE EVENT DATE: 201412
